FAERS Safety Report 9509914 (Version 1)
Quarter: 2013Q3

REPORT INFORMATION
  Report Type: Spontaneous
  Country: US (occurrence: US)
  Receive Date: 20130909
  Receipt Date: 20130909
  Transmission Date: 20140515
  Serious: No
  Sender: FDA-Public Use
  Company Number: US-BRISTOL-MYERS SQUIBB COMPANY-18804393

PATIENT
  Age: 50 Year
  Sex: Male

DRUGS (4)
  1. ABILIFY [Suspect]
     Indication: OBSESSIVE-COMPULSIVE DISORDER
     Dosage: 10 MG INCREASED TO 15MG IN LATE FEB2013 AND DISCONTINUED.
     Dates: start: 20130103
  2. RITALIN [Concomitant]
  3. TRAZODONE HCL [Concomitant]
  4. CLONAZEPAM [Concomitant]

REACTIONS (1)
  - Tremor [Unknown]
